FAERS Safety Report 23514576 (Version 1)
Quarter: 2024Q1

REPORT INFORMATION
  Report Type: Spontaneous
  Country: US (occurrence: US)
  Receive Date: 20240212
  Receipt Date: 20240212
  Transmission Date: 20240410
  Serious: No
  Sender: FDA-Public Use
  Company Number: US-BAUSCH-BL-2024-001990

PATIENT
  Age: 77 Year
  Sex: Female
  Weight: 47.216 kg

DRUGS (1)
  1. TRULANCE [Suspect]
     Active Substance: PLECANATIDE
     Indication: Constipation
     Route: 048
     Dates: start: 20240131

REACTIONS (5)
  - Peripheral swelling [Unknown]
  - Weight decreased [Unknown]
  - Feeding disorder [Unknown]
  - Decreased appetite [Unknown]
  - Therapeutic product effect incomplete [Unknown]

NARRATIVE: CASE EVENT DATE: 20240101
